FAERS Safety Report 25371971 (Version 1)
Quarter: 2025Q2

REPORT INFORMATION
  Report Type: Spontaneous
  Country: GB (occurrence: GB)
  Receive Date: 20250529
  Receipt Date: 20250529
  Transmission Date: 20250717
  Serious: Yes (Life-Threatening, Hospitalization, Other)
  Sender: AUROBINDO
  Company Number: GB-002147023-NVSC2023GB143911

PATIENT
  Age: 38 Year
  Sex: Male

DRUGS (27)
  1. CITALOPRAM HYDROBROMIDE [Suspect]
     Active Substance: CITALOPRAM HYDROBROMIDE
     Indication: Anxiety
     Dosage: 20 MILLIGRAM, ONCE A DAY
     Route: 048
  2. SILDENAFIL [Suspect]
     Active Substance: SILDENAFIL
     Indication: Erectile dysfunction
     Route: 048
  3. ESOMEPRAZOLE [Suspect]
     Active Substance: ESOMEPRAZOLE
     Indication: Gastrointestinal disorder
     Dosage: 20 MILLIGRAM, ONCE A DAY (20 MG (TABLET), QD)
     Route: 048
  4. ESOMEPRAZOLE [Suspect]
     Active Substance: ESOMEPRAZOLE
     Indication: Gastrointestinal disorder
  5. COSENTYX [Suspect]
     Active Substance: SECUKINUMAB
     Indication: Psoriasis
     Route: 058
     Dates: start: 202006
  6. COSENTYX [Suspect]
     Active Substance: SECUKINUMAB
     Indication: Psoriasis
     Route: 058
     Dates: start: 2020
  7. COSENTYX [Suspect]
     Active Substance: SECUKINUMAB
     Route: 058
     Dates: start: 202412
  8. COSENTYX [Suspect]
     Active Substance: SECUKINUMAB
     Route: 058
     Dates: start: 202501
  9. PROTOPIC [Suspect]
     Active Substance: TACROLIMUS
     Indication: Psoriasis
     Route: 065
  10. TRIMOVATE [Suspect]
     Active Substance: CLOBETASONE BUTYRATE\NYSTATIN\OXYTETRACYCLINE CALCIUM
     Indication: Candida infection
     Route: 065
  11. TRIMOVATE [Suspect]
     Active Substance: CLOBETASONE BUTYRATE\NYSTATIN\OXYTETRACYCLINE CALCIUM
     Indication: Psoriasis
  12. TRIMOVATE [Suspect]
     Active Substance: CLOBETASONE BUTYRATE\NYSTATIN\OXYTETRACYCLINE CALCIUM
     Indication: Candida infection
  13. TRIMOVATE [Suspect]
     Active Substance: CLOBETASONE BUTYRATE\NYSTATIN\OXYTETRACYCLINE CALCIUM
     Indication: Psoriasis
  14. COCODAMOL [Concomitant]
     Active Substance: ACETAMINOPHEN\CODEINE PHOSPHATE
     Indication: Product used for unknown indication
     Route: 065
  15. COCODAMOL [Concomitant]
     Active Substance: ACETAMINOPHEN\CODEINE PHOSPHATE
  16. MORPHINE [Concomitant]
     Active Substance: MORPHINE
     Indication: Product used for unknown indication
     Route: 065
  17. MORPHINE [Concomitant]
     Active Substance: MORPHINE
     Route: 065
  18. PREDNISOLONE [Concomitant]
     Active Substance: PREDNISOLONE
     Indication: Product used for unknown indication
     Route: 065
  19. PREDNISOLONE [Concomitant]
     Active Substance: PREDNISOLONE
     Route: 065
  20. MORPHINE SULFATE [Concomitant]
     Active Substance: MORPHINE SULFATE
     Indication: Product used for unknown indication
     Route: 065
  21. MORPHINE SULFATE [Concomitant]
     Active Substance: MORPHINE SULFATE
     Route: 065
  22. OMEPRAZOLE [Concomitant]
     Active Substance: OMEPRAZOLE
     Indication: Product used for unknown indication
     Route: 065
  23. OMEPRAZOLE [Concomitant]
     Active Substance: OMEPRAZOLE
     Route: 065
  24. AMITRIPTYLINE [Concomitant]
     Active Substance: AMITRIPTYLINE
     Indication: Product used for unknown indication
     Route: 065
  25. AMITRIPTYLINE [Concomitant]
     Active Substance: AMITRIPTYLINE
     Route: 065
  26. VIAGRA [Concomitant]
     Active Substance: SILDENAFIL CITRATE
     Indication: Product used for unknown indication
     Route: 065
  27. VIAGRA [Concomitant]
     Active Substance: SILDENAFIL CITRATE
     Route: 065

REACTIONS (25)
  - Pneumonia [Recovering/Resolving]
  - General physical health deterioration [Unknown]
  - Feeling abnormal [Unknown]
  - Cellulitis [Unknown]
  - Malaise [Unknown]
  - Mental disorder [Not Recovered/Not Resolved]
  - Ear infection [Unknown]
  - Upper respiratory tract infection [Unknown]
  - Full blood count abnormal [Unknown]
  - Cholesteatoma [Unknown]
  - Impaired healing [Unknown]
  - Hyperhidrosis [Unknown]
  - Confusional state [Unknown]
  - Psoriasis [Unknown]
  - Dyspnoea [Unknown]
  - Lung disorder [Unknown]
  - Skin disorder [Unknown]
  - Bone disorder [Unknown]
  - Infection [Unknown]
  - Oral candidiasis [Recovered/Resolved]
  - Ear, nose and throat infection [Unknown]
  - Inappropriate schedule of product administration [Unknown]
  - Drug dose omission by device [Unknown]
  - Device defective [Unknown]
  - Device issue [Unknown]

NARRATIVE: CASE EVENT DATE: 20250319
